FAERS Safety Report 6715476-4 (Version None)
Quarter: 2010Q2

REPORT INFORMATION
  Report Type: 
  Country: None (occurrence: None)
  Receive Date: 20100506
  Receipt Date: 20100506
  Transmission Date: 20101027
  Serious: Yes (Hospitalization)
  Sender: FDA-Public Use
  Company Number: None

PATIENT
  Age: 84 Year
  Sex: Female
  Weight: 63.7 kg

DRUGS (13)
  1. WARFARIN SODIUM [Suspect]
     Indication: ATRIAL FIBRILLATION
     Dosage: 4MG DAILY PO (HOME DOSE)
     Route: 048
  2. WARFARIN SODIUM [Suspect]
     Indication: DEEP VEIN THROMBOSIS
     Dosage: 4MG DAILY PO (HOME DOSE)
     Route: 048
  3. GLIPIZIDE [Concomitant]
  4. HYDRALAZINE HCL [Concomitant]
  5. LISINOPRIL [Concomitant]
  6. OMEPRAZOLE [Concomitant]
  7. SENNA [Concomitant]
  8. METOPROLOL [Concomitant]
  9. ALLOPURINOL [Concomitant]
  10. FENTANYL [Concomitant]
  11. FUROSEMIDE [Concomitant]
  12. ATORVASTATIN [Concomitant]
  13. CARBIDOPA-LEVODOPA [Concomitant]

REACTIONS (5)
  - HYPERCOAGULATION [None]
  - INTERNATIONAL NORMALISED RATIO INCREASED [None]
  - MALNUTRITION [None]
  - OCCULT BLOOD POSITIVE [None]
  - OVERDOSE [None]
